FAERS Safety Report 6129258-8 (Version None)
Quarter: 2009Q1

REPORT INFORMATION
  Report Type: 
  Country: None (occurrence: None)
  Receive Date: 20090324
  Receipt Date: 20090317
  Transmission Date: 20090719
  Serious: Yes (Death, Other)
  Sender: FDA-Public Use
  Company Number: US-ROCHE-622533

PATIENT
  Sex: Male

DRUGS (3)
  1. KLONOPIN [Suspect]
     Indication: POST-TRAUMATIC STRESS DISORDER
     Route: 065
  2. PAXIL [Suspect]
     Indication: POST-TRAUMATIC STRESS DISORDER
     Route: 065
  3. SEROQUEL [Suspect]
     Indication: POST-TRAUMATIC STRESS DISORDER
     Route: 065

REACTIONS (10)
  - ADVERSE REACTION [None]
  - ANGER [None]
  - DEPRESSION [None]
  - DRUG TOXICITY [None]
  - FATIGUE [None]
  - INDIFFERENCE [None]
  - IRRITABILITY [None]
  - LOSS OF EMPLOYMENT [None]
  - POST-TRAUMATIC STRESS DISORDER [None]
  - WRONG DRUG ADMINISTERED [None]
